FAERS Safety Report 8599289-7 (Version None)
Quarter: 2012Q3

REPORT INFORMATION
  Report Type: 
  Country: None (occurrence: None)
  Receive Date: 20120816
  Receipt Date: 20120709
  Transmission Date: 20120928
  Serious: No
  Sender: FDA-Public Use
  Company Number: US-AMGEN-USASP2012042147

PATIENT
  Sex: Female

DRUGS (5)
  1. NEUPOGEN [Suspect]
     Indication: NEUTROPENIA
  2. CYTOXAN [Concomitant]
     Dosage: UNK
  3. TAXOTERE [Concomitant]
     Dosage: UNK
  4. NEUPOGEN [Suspect]
     Indication: CHEMOTHERAPY
     Dosage: 300 MUG, QD
     Dates: start: 20120626, end: 20120629
  5. HERCEPTIN [Concomitant]
     Dosage: UNK

REACTIONS (1)
  - WHITE BLOOD CELL COUNT DECREASED [None]
